FAERS Safety Report 4623979-1 (Version None)
Quarter: 2005Q1

REPORT INFORMATION
  Report Type: 
  Country: None (occurrence: None)
  Receive Date: 20050331
  Receipt Date: 20050328
  Transmission Date: 20050727
  Serious: Yes (Death)
  Sender: FDA-Public Use
  Company Number: PHEH2005US03646

PATIENT
  Age: 53 Year
  Sex: Female

DRUGS (1)
  1. TRILEPTAL [Suspect]
     Indication: CONVULSION
     Dosage: 900 MG, QD
     Route: 048
     Dates: start: 20031001

REACTIONS (1)
  - CONVULSION [None]
